FAERS Safety Report 5022104-5 (Version None)
Quarter: 2006Q2

REPORT INFORMATION
  Report Type: 
  Country: None (occurrence: None)
  Receive Date: 20060428
  Receipt Date: 20060123
  Transmission Date: 20061013
  Serious: No
  Sender: FDA-Public Use
  Company Number: COT_0265_2005

PATIENT
  Age: 42 Year
  Sex: Female
  Weight: 116.5744 kg

DRUGS (23)
  1. VENTAVIS [Suspect]
     Indication: PULMONARY HYPERTENSION
     Dosage: 2.5 MCG ONCE IH
     Route: 055
     Dates: start: 20050408, end: 20050510
  2. VENTAVIS [Concomitant]
     Indication: PULMONARY HYPERTENSION
     Dosage: 5 MCG 6TO9X/DAY IH
     Route: 055
     Dates: start: 20050408, end: 20050510
  3. BOSENTAN [Concomitant]
  4. METHOTREXATE [Concomitant]
  5. ALBUTEROL [Concomitant]
  6. POTASSIUM CHLORIDE [Concomitant]
  7. NORTRIPTYLINE HCL [Concomitant]
  8. TOPAMAX [Concomitant]
  9. BENADRYL [Concomitant]
  10. ALDACTONE [Concomitant]
  11. PHENERGAN HCL [Concomitant]
  12. AMBIEN [Concomitant]
  13. LASIX [Concomitant]
  14. COLACE [Concomitant]
  15. FOLIC ACID [Concomitant]
  16. PROCARDIA XL [Concomitant]
  17. LORTAB [Concomitant]
  18. COUMADIN [Concomitant]
  19. PLAQUENIL [Concomitant]
  20. OXYGEN [Concomitant]
  21. FIORCET [Concomitant]
  22. HYALURONAN [Concomitant]
  23. PREDNISONE [Concomitant]

REACTIONS (3)
  - DYSPNOEA [None]
  - RASH [None]
  - SOMNOLENCE [None]
